FAERS Safety Report 15712559 (Version 2)
Quarter: 2019Q2

REPORT INFORMATION
  Report Type: Spontaneous
  Country: US (occurrence: US)
  Receive Date: 20181212
  Receipt Date: 20190509
  Transmission Date: 20190711
  Serious: No
  Sender: FDA-Public Use
  Company Number: US-BIOGEN-2018BI00669275

PATIENT
  Age: 55 Year
  Sex: Female

DRUGS (7)
  1. SIMVASTATIN. [Concomitant]
     Active Substance: SIMVASTATIN
     Route: 050
  2. HYDROCHLORTHIAZIDE [Concomitant]
     Active Substance: HYDROCHLOROTHIAZIDE
     Route: 050
  3. CELEBREX [Concomitant]
     Active Substance: CELECOXIB
     Route: 050
  4. TIZANIDINE. [Concomitant]
     Active Substance: TIZANIDINE
     Route: 050
  5. CARBAMAZEPINE. [Concomitant]
     Active Substance: CARBAMAZEPINE
     Route: 050
  6. TYSABRI [Suspect]
     Active Substance: NATALIZUMAB
     Indication: MULTIPLE SCLEROSIS
     Route: 050
     Dates: start: 20160303
  7. BACLOFEN. [Concomitant]
     Active Substance: BACLOFEN
     Route: 050

REACTIONS (7)
  - Pruritus [Not Recovered/Not Resolved]
  - Headache [Unknown]
  - Swollen tongue [Unknown]
  - Pain [Unknown]
  - Muscle spasms [Unknown]
  - Fatigue [Unknown]
  - Dysarthria [Unknown]

NARRATIVE: CASE EVENT DATE: 20181204
